FAERS Safety Report 6878207-3 (Version None)
Quarter: 2010Q3

REPORT INFORMATION
  Report Type: 
  Country: None (occurrence: None)
  Receive Date: 20100728
  Receipt Date: 20100715
  Transmission Date: 20110219
  Serious: Yes (Death)
  Sender: FDA-Public Use
  Company Number: JP-PFIZER INC-2010088694

PATIENT
  Age: 80 Year
  Sex: Male

DRUGS (10)
  1. SUNITINIB MALATE [Suspect]
     Indication: RENAL CELL CARCINOMA
     Dosage: 50 MG, 1X/DAY
     Route: 048
     Dates: start: 20091117
  2. HYPEN [Concomitant]
     Dosage: 200 MG, 2X/DAY
     Route: 048
  3. RINDERON [Concomitant]
     Dosage: 0.5 MG, 2X/DAY
     Route: 048
  4. MUCODYNE [Concomitant]
     Dosage: 500 MG, 3X/DAY
     Route: 048
  5. FAMOTIDINE [Concomitant]
     Dosage: 20 MG, 1X/DAY
     Route: 048
  6. RINDERON-VG [Concomitant]
     Dosage: UNK
     Route: 062
  7. HIRUDOID [Concomitant]
     Route: 062
  8. CODEINE PHOSPHATE [Concomitant]
     Dosage: 20 MG, 4X/DAY
     Route: 048
  9. OLMESARTAN MEDOXOMIL [Concomitant]
     Dosage: 20 MG, 1X/DAY
     Route: 048
     Dates: start: 20091124
  10. NORVASC [Concomitant]
     Dosage: 5 MG, 1X/DAY
     Route: 048
     Dates: start: 20091124

REACTIONS (1)
  - DEATH [None]
